FAERS Safety Report 8386992-7 (Version None)
Quarter: 2012Q2

REPORT INFORMATION
  Report Type: 
  Country: None (occurrence: None)
  Receive Date: 20120523
  Receipt Date: 20120509
  Transmission Date: 20120825
  Serious: Yes (Hospitalization)
  Sender: FDA-Public Use
  Company Number: 1285204

PATIENT
  Age: 13 Year
  Sex: Male

DRUGS (11)
  1. METHOTREXATE [Suspect]
     Indication: ACUTE LYMPHOCYTIC LEUKAEMIA
     Dosage: INTRADISCAL (INTRASPINAL)
     Route: 024
     Dates: start: 20110909, end: 20111003
  2. HYDROCORTISONE [Suspect]
     Indication: ACUTE LYMPHOCYTIC LEUKAEMIA
     Dosage: INTRADISCAL (INTRASPINAL)
     Route: 024
     Dates: start: 20110920, end: 20111003
  3. BACTRIM [Concomitant]
  4. CERUBIDINE [Suspect]
     Indication: ACUTE LYMPHOCYTIC LEUKAEMIA
     Dosage: INTRAVENOUS (NOT OTHERWISE SPECIFIED)
     Route: 042
     Dates: start: 20110916, end: 20110930
  5. (AMIKLIN /00391001/) [Concomitant]
  6. TAZOBACTAM [Concomitant]
  7. SOLUPRED /00016217/) [Concomitant]
  8. VINCRISTINE SULFATE [Suspect]
     Indication: ACUTE LYMPHOCYTIC LEUKAEMIA
     Dosage: IN ACCORDANCE WITH THE CYCLE,INTRAVENOUS (NOT OTHERWISE SPECIFIED)
     Route: 042
     Dates: start: 20110916, end: 20110930
  9. CYTARABINE [Suspect]
     Indication: ACUTE LYMPHOCYTIC LEUKAEMIA
     Dosage: INTRADISCAL (INTRASPINAL)
     Route: 024
     Dates: start: 20110920, end: 20111003
  10. (KIDROLASE) [Suspect]
     Indication: ACUTE LYMPHOCYTIC LEUKAEMIA
     Dosage: INTRAVENOUS (NOT OTHERWISE SPECIFIED)
     Route: 042
     Dates: start: 20110920, end: 20111003
  11. FASTURTEC [Concomitant]

REACTIONS (8)
  - BACTERIAL INFECTION [None]
  - FUNGAL INFECTION [None]
  - CANDIDIASIS [None]
  - BLOOD CULTURE POSITIVE [None]
  - KLEBSIELLA INFECTION [None]
  - APLASIA [None]
  - ABDOMINAL PAIN [None]
  - DIARRHOEA [None]
